FAERS Safety Report 7875394-5 (Version None)
Quarter: 2011Q4

REPORT INFORMATION
  Report Type: 
  Country: None (occurrence: None)
  Receive Date: 20111031
  Receipt Date: 20111019
  Transmission Date: 20120403
  Serious: Yes (Other)
  Sender: FDA-Public Use
  Company Number: IT-GLAXOSMITHKLINE-B0759081A

PATIENT
  Sex: Female

DRUGS (2)
  1. XELODA [Concomitant]
     Dosage: 3650MG PER DAY
     Route: 048
     Dates: start: 20110531, end: 20110805
  2. LAPATINIB [Suspect]
     Indication: BREAST CANCER
     Route: 048
     Dates: start: 20110531, end: 20110805

REACTIONS (1)
  - APHASIA [None]
